FAERS Safety Report 10352995 (Version 2)
Quarter: 2015Q1

REPORT INFORMATION
  Report Type: Report from Study
  Country: BR (occurrence: BR)
  Receive Date: 20140730
  Receipt Date: 20150203
  Transmission Date: 20150720
  Serious: Yes (Other)
  Sender: FDA-Public Use
  Company Number: BR-ABBVIE-14K-020-1264829-00

PATIENT
  Sex: Female
  Weight: 71 kg

DRUGS (13)
  1. CIPROFIBRATE [Concomitant]
     Active Substance: CIPROFIBRATE
     Indication: DYSLIPIDAEMIA
     Dosage: AFTER LUNCH
     Route: 048
  2. HUMIRA [Suspect]
     Active Substance: ADALIMUMAB
     Indication: CROHN^S DISEASE
     Dosage: UNSPECIFIED INDUCTION DOSE
     Route: 058
     Dates: start: 2012, end: 2012
  3. OLCADIL [Concomitant]
     Active Substance: CLOXAZOLAM
     Indication: SEDATIVE THERAPY
     Dosage: BEFORE SURGERY
     Route: 048
  4. MAXALT [Concomitant]
     Active Substance: RIZATRIPTAN BENZOATE
     Indication: MIGRAINE
     Route: 048
     Dates: start: 2014
  5. ADDERA D3 [Concomitant]
     Active Substance: CHOLECALCIFEROL
     Indication: VITAMIN SUPPLEMENTATION
     Route: 048
     Dates: start: 201406
  6. HUMIRA [Suspect]
     Active Substance: ADALIMUMAB
     Route: 058
  7. PERIDAL [Concomitant]
     Indication: PROPHYLAXIS
  8. LIPANON [Concomitant]
     Active Substance: FENOFIBRATE
     Indication: BLOOD TRIGLYCERIDES ABNORMAL
     Route: 048
  9. FENOFIBRATE. [Concomitant]
     Active Substance: FENOFIBRATE
     Indication: DYSLIPIDAEMIA
     Dosage: AFTER LUNCH
     Route: 048
  10. NARAMIG [Concomitant]
     Active Substance: NARATRIPTAN HYDROCHLORIDE
     Indication: MIGRAINE
     Route: 048
     Dates: start: 2014
  11. PERIDAL [Concomitant]
     Indication: ABDOMINAL DISCOMFORT
     Dosage: AFTER SURGERY
     Route: 048
  12. HUMIRA [Suspect]
     Active Substance: ADALIMUMAB
     Route: 058
  13. TAMISA [Concomitant]
     Active Substance: ETHINYL ESTRADIOL\GESTODENE
     Indication: CONTRACEPTION
     Route: 048
     Dates: start: 1999

REACTIONS (7)
  - Flatulence [Unknown]
  - Somnolence [Recovered/Resolved]
  - Migraine [Unknown]
  - Nausea [Unknown]
  - Rhinitis [Not Recovered/Not Resolved]
  - Influenza like illness [Not Recovered/Not Resolved]
  - Abdominal adhesions [Recovered/Resolved]

NARRATIVE: CASE EVENT DATE: 2012
